FAERS Safety Report 7814527-3 (Version None)
Quarter: 2011Q4

REPORT INFORMATION
  Report Type: 
  Country: None (occurrence: None)
  Receive Date: 20111014
  Receipt Date: 20111012
  Transmission Date: 20120403
  Serious: Yes (Death, Other)
  Sender: FDA-Public Use
  Company Number: PHHY2011CA34154

PATIENT
  Sex: Female

DRUGS (1)
  1. CLOZARIL [Suspect]
     Indication: SCHIZOAFFECTIVE DISORDER
     Dosage: 450 MG, QD
     Route: 048
     Dates: start: 20101221, end: 20110902

REACTIONS (3)
  - BRAIN NEOPLASM MALIGNANT [None]
  - METASTASES TO LIVER [None]
  - LUNG NEOPLASM MALIGNANT [None]
